FAERS Safety Report 25038275 (Version 1)
Quarter: 2025Q1

REPORT INFORMATION
  Report Type: Spontaneous
  Country: US (occurrence: US)
  Receive Date: 20250304
  Receipt Date: 20250304
  Transmission Date: 20250409
  Serious: Yes (Other)
  Sender: PFIZER
  Company Number: US-PFIZER INC-202400303123

PATIENT
  Age: 72 Year
  Sex: Female
  Weight: 90.71 kg

DRUGS (1)
  1. IBRANCE [Suspect]
     Active Substance: PALBOCICLIB
     Indication: Breast cancer female
     Route: 048
     Dates: start: 202205

REACTIONS (3)
  - Breast cancer female [Unknown]
  - Malignant neoplasm progression [Unknown]
  - Metastases to bone [Unknown]
